FAERS Safety Report 9436093 (Version 3)
Quarter: 2013Q4

REPORT INFORMATION
  Report Type: Spontaneous
  Country: CA (occurrence: CA)
  Receive Date: 20130801
  Receipt Date: 20131014
  Transmission Date: 20140711
  Serious: Yes (Other)
  Sender: FDA-Public Use
  Company Number: CA-ROCHE-1252206

PATIENT
  Age: 76 Year
  Sex: Female

DRUGS (17)
  1. ACTIVASE [Suspect]
     Indication: CEREBROVASCULAR ACCIDENT
     Dosage: 16H20
     Route: 042
     Dates: start: 20130718, end: 20130718
  2. ACETAMINOPHEN [Concomitant]
     Indication: PAIN
     Dosage: 1 EVERY 4 HOURS
     Route: 048
     Dates: start: 20130719
  3. ENTROPHEN [Concomitant]
     Dosage: AT BREAKFAST
     Route: 048
     Dates: start: 20130720
  4. LIPITOR [Concomitant]
     Dosage: AT BEDTIME
     Route: 048
     Dates: start: 20130719
  5. CHLORHEXIDINE [Concomitant]
     Dosage: WASH PATIENT WITH CHLORHAXIDINE TWICE WEEKLY
     Route: 065
     Dates: start: 20130720
  6. CLINDAMYCIN [Concomitant]
     Dosage: 6ML
     Route: 042
     Dates: start: 20130720
  7. COLACE [Concomitant]
     Route: 048
     Dates: start: 20130719
  8. LOVENOX [Concomitant]
     Dosage: 40 MG/0.4ML SYRINGE PRE FILLED
     Route: 058
     Dates: start: 20130719
  9. GLYCERIN [Concomitant]
     Dosage: 1 SUPPLEMENT AS NEEDED DAILY
     Route: 065
     Dates: start: 20130719
  10. LABETALOL [Concomitant]
     Indication: BLOOD PRESSURE
     Route: 042
     Dates: start: 20130718, end: 20130718
  11. LABETALOL [Concomitant]
     Dosage: TITRATED TO MAINTAIN PRESSURE LESS THAN 180
     Route: 011
     Dates: start: 20130718
  12. CEPHULAC [Concomitant]
     Route: 048
     Dates: start: 20130719
  13. LEVAQUIN [Concomitant]
     Route: 042
     Dates: start: 20130721
  14. MERREM [Concomitant]
     Dosage: 40ML
     Route: 042
     Dates: start: 20130721
  15. MUPIROCIN [Concomitant]
     Dosage: APPLY TO NOSTRILS
     Route: 065
  16. FLEET [Concomitant]
     Dosage: 1 ENEMA INTRARECTAL DAILY AS NEEDED
     Route: 054
     Dates: start: 20130719
  17. VANCOCIN [Concomitant]
     Route: 042
     Dates: start: 20130720

REACTIONS (2)
  - Bacteraemia [Unknown]
  - Suspected transmission of an infectious agent via product [Unknown]
